FAERS Safety Report 5803008-4 (Version None)
Quarter: 2008Q2

REPORT INFORMATION
  Report Type: 
  Country: None (occurrence: None)
  Receive Date: 20080625
  Receipt Date: 20071116
  Transmission Date: 20081010
  Serious: Yes (Hospitalization)
  Sender: FDA-Public Use
  Company Number: DSU-2007-00886

PATIENT
  Age: 85 Year
  Sex: Male

DRUGS (2)
  1. BENICAR [Suspect]
     Indication: PROPHYLAXIS
     Dosage: (QD), PER ORAL
     Route: 048
     Dates: start: 20071001, end: 20071101
  2. ZOCOR [Suspect]
     Indication: DRUG USE FOR UNKNOWN INDICATION
     Dosage: PER ORAL
     Route: 048
     Dates: end: 20071101

REACTIONS (1)
  - RHABDOMYOLYSIS [None]
